FAERS Safety Report 11876254 (Version 2)
Quarter: 2016Q1

REPORT INFORMATION
  Report Type: Report from Study
  Country: US (occurrence: US)
  Receive Date: 20151229
  Receipt Date: 20160122
  Transmission Date: 20160526
  Serious: Yes (Other)
  Sender: FDA-Public Use
  Company Number: US-GILEAD-2015-0190034

PATIENT
  Age: 79 Year
  Sex: Female

DRUGS (1)
  1. IDELALISIB [Suspect]
     Active Substance: IDELALISIB
     Indication: CHRONIC LYMPHOCYTIC LEUKAEMIA
     Dosage: 150 MG, UNK
     Route: 048
     Dates: start: 20151201

REACTIONS (2)
  - Nasopharyngitis [Recovered/Resolved]
  - Lower respiratory tract congestion [Recovered/Resolved]

NARRATIVE: CASE EVENT DATE: 201512
